FAERS Safety Report 20325860 (Version 1)
Quarter: 2022Q1

REPORT INFORMATION
  Report Type: Spontaneous
  Country: US (occurrence: US)
  Receive Date: 20220112
  Receipt Date: 20220112
  Transmission Date: 20220423
  Serious: No
  Sender: FDA-Public Use
  Company Number: US-AUROBINDO-AUR-APL-2021-001404

PATIENT

DRUGS (1)
  1. DEXTROAMPHET SACCHARAT, AMPHET ASPARTATE, DEXTROAMPHET SULFATE AND AMP [Suspect]
     Active Substance: AMPHETAMINE ASPARTATE\AMPHETAMINE SULFATE\DEXTROAMPHETAMINE SACCHARATE\DEXTROAMPHETAMINE SULFATE
     Indication: Attention deficit hyperactivity disorder
     Dosage: 10 MILLIGRAM, 3 TIMES A DAY
     Route: 065

REACTIONS (11)
  - Loss of personal independence in daily activities [Unknown]
  - Feeling abnormal [Unknown]
  - Disturbance in attention [Unknown]
  - Confusional state [Unknown]
  - Heart rate increased [Unknown]
  - Blood pressure increased [Unknown]
  - Anxiety [Unknown]
  - Treatment noncompliance [Unknown]
  - Product dose omission issue [Unknown]
  - Drug ineffective [Unknown]
  - Product substitution issue [Unknown]
